FAERS Safety Report 23458501 (Version 2)
Quarter: 2024Q1

REPORT INFORMATION
  Report Type: Spontaneous
  Country: US (occurrence: US)
  Receive Date: 20240130
  Receipt Date: 20240208
  Transmission Date: 20240409
  Serious: Yes (Death)
  Sender: FDA-Public Use
  Company Number: US-BRISTOL-MYERS SQUIBB COMPANY-2024-015161

PATIENT
  Age: 81 Year
  Sex: Male

DRUGS (1)
  1. REVLIMID [Suspect]
     Active Substance: LENALIDOMIDE
     Indication: Plasma cell myeloma
     Dosage: DOSE : 2.5 MG; FREQ : DAYS 1 THROUGH 21 WITH 7 DAYS OFF
     Route: 048
     Dates: start: 20200413, end: 20240105

REACTIONS (1)
  - Accident [Fatal]

NARRATIVE: CASE EVENT DATE: 20240124
